FAERS Safety Report 10227057 (Version 1)
Quarter: 2014Q2

REPORT INFORMATION
  Report Type: Spontaneous
  Country: US (occurrence: US)
  Receive Date: 20140610
  Receipt Date: 20140610
  Transmission Date: 20141212
  Serious: Yes (Other)
  Sender: FDA-Public Use
  Company Number: US-AMGEN-USASP2014041554

PATIENT
  Sex: Female

DRUGS (1)
  1. PROLIA [Suspect]
     Indication: PRODUCT USED FOR UNKNOWN INDICATION
     Dosage: UNK
     Route: 065

REACTIONS (8)
  - Lung infection [Unknown]
  - Deafness [Unknown]
  - Blood cholesterol increased [Unknown]
  - Pain [Unknown]
  - Bronchitis [Unknown]
  - Pruritus [Unknown]
  - Chest pain [Unknown]
  - Bone density abnormal [Unknown]
